FAERS Safety Report 8344721-7 (Version None)
Quarter: 2012Q2

REPORT INFORMATION
  Report Type: 
  Country: None (occurrence: None)
  Receive Date: 20120508
  Receipt Date: 20120501
  Transmission Date: 20120825
  Serious: Yes (Other)
  Sender: FDA-Public Use
  Company Number: US-BRISTOL-MYERS SQUIBB COMPANY-16562928

PATIENT
  Age: 79 Year
  Sex: Male
  Weight: 91 kg

DRUGS (9)
  1. LEVAQUIN [Suspect]
     Dosage: 1DF:1 DOSE
  2. MYCOPHENOLATE MOFETIL (CELLCEPT) [Concomitant]
  3. TOPROL-XL [Concomitant]
  4. COUMADIN [Suspect]
     Indication: ATRIAL FIBRILLATION
     Dosage: THERAPY DURATION:6-7 YEARS
  5. PREDNISONE TAB [Concomitant]
     Dosage: DOSE:5 MG 4 DAYS IN A WEEK
  6. ASPIRIN [Suspect]
  7. LISINOPRIL AND HYDROCHLOROTHIAZIDE [Concomitant]
  8. FISH OIL [Concomitant]
  9. ZETIA [Concomitant]

REACTIONS (7)
  - INTERNATIONAL NORMALISED RATIO INCREASED [None]
  - HAEMATOMA [None]
  - URINARY TRACT INFECTION [None]
  - HAEMORRHAGE URINARY TRACT [None]
  - EPISTAXIS [None]
  - FAECES DISCOLOURED [None]
  - GINGIVAL BLEEDING [None]
